FAERS Safety Report 17955093 (Version 4)
Quarter: 2022Q1

REPORT INFORMATION
  Report Type: Report from Study
  Country: DE (occurrence: DE)
  Receive Date: 20200629
  Receipt Date: 20220325
  Transmission Date: 20220423
  Serious: Yes (Hospitalization, Other)
  Sender: FDA-Public Use
  Company Number: DE-EMA-DD-20200615-FAIZAN_M-144129

PATIENT
  Sex: Female
  Weight: 99 kg

DRUGS (3)
  1. ETHINYL ESTRADIOL\LEVONORGESTREL [Suspect]
     Active Substance: ETHINYL ESTRADIOL\LEVONORGESTREL
     Indication: Product used for unknown indication
     Dosage: UNK , THERAPY START DATE AND END DATE : ASKU
     Route: 065
     Dates: end: 200806
  2. METFORMIN [Concomitant]
     Active Substance: METFORMIN HYDROCHLORIDE
     Indication: Polycystic ovaries
     Dosage: UNK , THERAPY END DATE: ASKU
     Dates: start: 201306
  3. TAGRISSO [Concomitant]
     Active Substance: OSIMERTINIB
     Dosage: UNK , THERAPY START DATE AND END DATE: ASKU

REACTIONS (3)
  - Bronchial carcinoma [Unknown]
  - Deep vein thrombosis [Unknown]
  - Maternal exposure during pregnancy [Recovered/Resolved]

NARRATIVE: CASE EVENT DATE: 20180312
